FAERS Safety Report 8032063-9 (Version None)
Quarter: 2012Q1

REPORT INFORMATION
  Report Type: 
  Country: None (occurrence: None)
  Receive Date: 20120109
  Receipt Date: 20110725
  Transmission Date: 20120608
  Serious: No
  Sender: FDA-Public Use
  Company Number: US-ABBOTT-11P-163-0841775-00

PATIENT
  Sex: Male
  Weight: 54.48 kg

DRUGS (4)
  1. VICODIN [Suspect]
     Indication: TOOTHACHE
     Dosage: 5/500 MG
     Route: 048
     Dates: start: 20110722, end: 20110722
  2. FLUDROCORTISONE [Concomitant]
     Indication: ADDISON'S DISEASE
  3. NAPROXEN [Concomitant]
     Indication: TOOTHACHE
  4. PREDNISONE TAB [Concomitant]
     Indication: ADDISON'S DISEASE

REACTIONS (2)
  - ABDOMINAL PAIN UPPER [None]
  - DRUG INEFFECTIVE [None]
